FAERS Safety Report 5030405-X (Version None)
Quarter: 2006Q2

REPORT INFORMATION
  Report Type: 
  Country: None (occurrence: None)
  Receive Date: 20060615
  Receipt Date: 20060614
  Transmission Date: 20061013
  Serious: Yes (Life-Threatening, Hospitalization)
  Sender: FDA-Public Use
  Company Number: 218724

PATIENT
  Age: 45 Year
  Sex: Female

DRUGS (1)
  1. HERCEPTIN [Suspect]
     Indication: BREAST CANCER
     Dosage: 784 MG
     Dates: start: 20051014

REACTIONS (2)
  - ACUTE RESPIRATORY DISTRESS SYNDROME [None]
  - NON-CARDIOGENIC PULMONARY OEDEMA [None]
